FAERS Safety Report 14220459 (Version 1)
Quarter: 2017Q4

REPORT INFORMATION
  Report Type: Spontaneous
  Country: US (occurrence: US)
  Receive Date: 20171124
  Receipt Date: 20171124
  Transmission Date: 20180321
  Serious: No
  Sender: FDA-Public Use
  Company Number: US-GLAXOSMITHKLINE-US2017176954

PATIENT
  Age: 75 Year
  Sex: Male

DRUGS (3)
  1. FLONASE ALLERGY RELIEF [Suspect]
     Active Substance: FLUTICASONE PROPIONATE
     Indication: DIZZINESS
     Dosage: UNK
  2. BENEFIBER [Suspect]
     Active Substance: STARCH, WHEAT
     Indication: SUPPLEMENTATION THERAPY
     Dosage: UNK, USED 1 TABLESPOON ONCE A DAY
     Dates: start: 201711, end: 20171117
  3. BENEFIBER [Suspect]
     Active Substance: STARCH, WHEAT
     Indication: GASTROINTESTINAL DISORDER

REACTIONS (5)
  - Drug ineffective for unapproved indication [Unknown]
  - Abdominal distension [Unknown]
  - Dizziness [Unknown]
  - Faeces soft [Unknown]
  - Off label use [Unknown]
